FAERS Safety Report 6967752 (Version 5)
Quarter: 2024Q3

REPORT INFORMATION
  Report Type: Spontaneous
  Country: DE (occurrence: DE)
  Receive Date: 20090413
  Receipt Date: 20240917
  Transmission Date: 20241017
  Serious: Yes (Hospitalization, Other)
  Sender: NOVARTIS
  Company Number: PHHY2009DE13174

PATIENT
  Age: 66 Year
  Sex: Female
  Weight: 70 kg

DRUGS (29)
  1. CYCLOSPORINE [Suspect]
     Active Substance: CYCLOSPORINE
     Indication: Renal transplant
     Dosage: UNK
     Route: 048
     Dates: start: 200811
  2. CYCLOSPORINE [Suspect]
     Active Substance: CYCLOSPORINE
     Indication: Immunosuppression
     Dosage: UNK (150-0-125 MG)
     Route: 048
     Dates: start: 20090209
  3. CYCLOSPORINE [Suspect]
     Active Substance: CYCLOSPORINE
     Dosage: 850 MG QD
     Route: 048
     Dates: start: 200811, end: 20090208
  4. CYCLOSPORINE [Suspect]
     Active Substance: CYCLOSPORINE
     Dosage: 150 GIVEN IN MORNING AND 125 GIVEN IN EVENING
     Route: 048
  5. CYCLOSPORINE [Suspect]
     Active Substance: CYCLOSPORINE
     Dosage: 225MG GIVEN IN MORNING AND 200 MG GIVEN IN EVENING
     Route: 048
     Dates: start: 200811
  6. CELLCEPT [Suspect]
     Active Substance: MYCOPHENOLATE MOFETIL
     Indication: Renal transplant
     Dosage: 500 MG, QID
     Route: 048
     Dates: start: 200811, end: 20090209
  7. CELLCEPT [Suspect]
     Active Substance: MYCOPHENOLATE MOFETIL
     Indication: Renal transplant
     Dosage: UNK (1500 MG/DAY)
     Route: 048
     Dates: start: 20090217
  8. CELLCEPT [Suspect]
     Active Substance: MYCOPHENOLATE MOFETIL
     Indication: Immunosuppression
     Dosage: 500 MG
     Route: 048
     Dates: start: 20090217
  9. CELLCEPT [Suspect]
     Active Substance: MYCOPHENOLATE MOFETIL
     Dosage: 500 MG, QD
     Route: 048
     Dates: start: 200811, end: 20090209
  10. SULFAMETHOXAZOLE AND TRIMETHOPRIM [Suspect]
     Active Substance: SULFAMETHOXAZOLE\TRIMETHOPRIM
     Indication: Prophylaxis urinary tract infection
     Dosage: UNK
     Route: 048
     Dates: start: 20081223, end: 20090206
  11. RAMIPRIL [Suspect]
     Active Substance: RAMIPRIL
     Indication: Hypertension
     Dosage: 5 MG, BID
     Route: 048
     Dates: start: 20081223, end: 20090206
  12. NOVALGIN (METAMIZOLE SODIUM) [Suspect]
     Active Substance: METAMIZOLE SODIUM
     Indication: Pain
     Dosage: 30 MG, QD
     Route: 048
     Dates: start: 200811, end: 20090206
  13. NOVALGIN (METAMIZOLE SODIUM) [Suspect]
     Active Substance: METAMIZOLE SODIUM
     Indication: Pain
     Dosage: 30 DRP
     Route: 065
     Dates: start: 200811, end: 20090206
  14. VALGANCICLOVIR [Suspect]
     Active Substance: VALGANCICLOVIR
     Indication: Opportunistic infection prophylaxis
     Dosage: 450 MG
     Route: 048
     Dates: start: 200811, end: 20090206
  15. SULFAMETHOXAZOLE\TRIMETHOPRIM [Suspect]
     Active Substance: SULFAMETHOXAZOLE\TRIMETHOPRIM
     Indication: Prophylaxis urinary tract infection
     Dosage: 0.5 DOSAGE FORM
     Route: 048
     Dates: start: 20081223, end: 20090206
  16. VALCYTE [Suspect]
     Active Substance: VALGANCICLOVIR HYDROCHLORIDE
     Indication: Opportunistic infection prophylaxis
     Dosage: UNK
     Route: 048
     Dates: start: 200811, end: 20090206
  17. VALCYTE [Suspect]
     Active Substance: VALGANCICLOVIR HYDROCHLORIDE
     Dosage: 450 MG
     Route: 048
     Dates: start: 200811, end: 20090206
  18. BISOPROLOL [Concomitant]
     Active Substance: BISOPROLOL\BISOPROLOL FUMARATE
     Indication: Tachycardia
     Dosage: 2.5 MG, QD
     Route: 048
     Dates: start: 20081223
  19. CALCIUM\CHOLECALCIFEROL [Concomitant]
     Active Substance: CALCIUM\CHOLECALCIFEROL
     Indication: Chronic kidney disease-mineral and bone disorder
     Dosage: 1 MG, BID
     Route: 048
     Dates: start: 200811
  20. CALCIUM\CHOLECALCIFEROL [Concomitant]
     Active Substance: CALCIUM\CHOLECALCIFEROL
     Indication: Chronic kidney disease-mineral and bone disorder
  21. FALITHROM [Concomitant]
     Active Substance: PHENPROCOUMON
     Indication: Venous thrombosis
     Dosage: 3 MG, QD (NUMBER OF SEPERATE DOSAGES REPORTED AS 1  )
     Route: 048
     Dates: start: 20090130, end: 20090207
  22. LOCOL [Concomitant]
     Indication: Cardiovascular event prophylaxis
     Dosage: 40 MG, QD
     Route: 065
     Dates: start: 200811
  23. MCP [Concomitant]
     Active Substance: METOCLOPRAMIDE HYDROCHLORIDE
     Indication: Product used for unknown indication
     Dosage: 20 MG, TID
     Route: 065
     Dates: start: 200812, end: 20090213
  24. MCP [Concomitant]
     Active Substance: METOCLOPRAMIDE HYDROCHLORIDE
     Dosage: 60 MG
     Route: 048
     Dates: start: 200812, end: 20090213
  25. PREDNISOLONE [Concomitant]
     Active Substance: PREDNISOLONE
     Indication: Renal transplant
     Dosage: NUMBER OF SEPERATE DOSAGES REPORTED AS 1
     Route: 048
     Dates: start: 200811
  26. PREDNISOLONE [Concomitant]
     Active Substance: PREDNISOLONE
     Indication: Renal transplant
  27. PREDNISOLONE [Concomitant]
     Active Substance: PREDNISOLONE
     Indication: Immunosuppression
  28. TORSEMIDE [Concomitant]
     Active Substance: TORSEMIDE
     Indication: Hypertension
     Dosage: 20 MG, QD
     Route: 048
     Dates: start: 200811
  29. TORSEMIDE [Concomitant]
     Active Substance: TORSEMIDE
     Dosage: NUMBER OF SEPERATE DOSAGES REPORTED AS 2
     Route: 048
     Dates: start: 200811

REACTIONS (20)
  - Leukopenia [Recovered/Resolved]
  - Erythropenia [Recovered/Resolved]
  - Urinary tract infection pseudomonal [Recovered/Resolved]
  - Pseudomonas infection [Recovered/Resolved]
  - Renal tubular atrophy [Unknown]
  - Renal tubular disorder [Unknown]
  - Nasopharyngitis [Recovering/Resolving]
  - Oropharyngeal pain [Recovered/Resolved]
  - Cough [Recovering/Resolving]
  - Immunosuppressant drug level increased [Unknown]
  - Pancytopenia [Recovered/Resolved]
  - Leukopenia [Recovered/Resolved]
  - Renal impairment [Unknown]
  - Urinary tract infection [Recovered/Resolved]
  - Renal tubular atrophy [Unknown]
  - Pseudomonas infection [Recovered/Resolved]
  - Erythropenia [Unknown]
  - Urinary tract infection [Recovered/Resolved]
  - Focal segmental glomerulosclerosis [Unknown]
  - Immunosuppressant drug level increased [Unknown]

NARRATIVE: CASE EVENT DATE: 20090206
